FAERS Safety Report 4403350-8 (Version None)
Quarter: 2004Q3

REPORT INFORMATION
  Report Type: 
  Country: None (occurrence: None)
  Receive Date: 20040721
  Receipt Date: 20040504
  Transmission Date: 20050211
  Serious: No
  Sender: FDA-Public Use
  Company Number: US-GLAXOSMITHKLINE-A0509469A

PATIENT
  Age: 53 Year
  Sex: Female

DRUGS (6)
  1. IMITREX [Suspect]
     Indication: MIGRAINE
     Dosage: 100MG PER DAY
     Route: 048
     Dates: start: 20040504
  2. INSULIN [Concomitant]
  3. GLUCOTROL XL [Concomitant]
  4. NORVASC [Concomitant]
  5. AVANDIA [Concomitant]
  6. XANAX [Concomitant]

REACTIONS (3)
  - BURNING SENSATION [None]
  - DRUG INEFFECTIVE [None]
  - NAUSEA [None]
